FAERS Safety Report 24908657 (Version 1)
Quarter: 2025Q1

REPORT INFORMATION
  Report Type: Spontaneous
  Country: PL (occurrence: PL)
  Receive Date: 20250131
  Receipt Date: 20250131
  Transmission Date: 20250409
  Serious: Yes (Other)
  Sender: AUROBINDO
  Company Number: PL-AUROBINDO-AUR-APL-2025-003294

PATIENT
  Age: 11 Year
  Sex: Female

DRUGS (3)
  1. IMATINIB [Suspect]
     Active Substance: IMATINIB
     Indication: Chronic myeloid leukaemia
     Dosage: 30 MILLIGRAM/SQ. METER, ONCE A DAY
     Route: 048
  2. DASATINIB [Suspect]
     Active Substance: DASATINIB
     Indication: Chronic myeloid leukaemia
     Dosage: 100 MG/M2, ONCE A DAY
     Route: 065
  3. DASATINIB [Suspect]
     Active Substance: DASATINIB
     Route: 065

REACTIONS (2)
  - Drug resistance [Unknown]
  - Intentional product misuse [Unknown]
